FAERS Safety Report 4577838-3 (Version None)
Quarter: 2005Q1

REPORT INFORMATION
  Report Type: 
  Country: None (occurrence: None)
  Receive Date: 20050127
  Receipt Date: 20040827
  Transmission Date: 20050727
  Serious: No
  Sender: FDA-Public Use
  Company Number: USA040876718

PATIENT
  Age: 12 Year
  Sex: Male
  Weight: 55 kg

DRUGS (2)
  1. STRATTERA [Suspect]
     Dosage: 80 MG
  2. ADDERALL [Concomitant]

REACTIONS (2)
  - EDUCATIONAL PROBLEM [None]
  - PRESCRIBED OVERDOSE [None]
